FAERS Safety Report 11177651 (Version 5)
Quarter: 2016Q1

REPORT INFORMATION
  Report Type: Spontaneous
  Country: US (occurrence: US)
  Receive Date: 20150610
  Receipt Date: 20160218
  Transmission Date: 20160525
  Serious: No
  Sender: FDA-Public Use
  Company Number: US-PFIZER INC-2015192788

PATIENT
  Age: 82 Year
  Sex: Female
  Weight: 59 kg

DRUGS (11)
  1. SYNTHROID [Concomitant]
     Active Substance: LEVOTHYROXINE SODIUM
     Dosage: 0.05 (UNIT UNKNOWN) IN THE EVENING
  2. MAGNESIUM [Concomitant]
     Active Substance: MAGNESIUM
     Dosage: 100 MG, UNK
  3. VALIUM [Concomitant]
     Active Substance: DIAZEPAM
     Indication: MUSCLE SPASMS
     Dosage: 2 MG AT HALF DOSE FORM IN THE MORNING AS NEEDED
  4. PRILOSEC [Concomitant]
     Active Substance: OMEPRAZOLE MAGNESIUM
     Dosage: 20MG IN THE EVENING
  5. CITRACAL [Concomitant]
     Active Substance: CALCIUM CITRATE
     Dosage: 1200MG IN THE MORNING AND EVENING
  6. MIRALAX [Concomitant]
     Active Substance: POLYETHYLENE GLYCOL 3350
     Dosage: 1 DOSE FORM IN THE MORNING
  7. CELECOXIB. [Suspect]
     Active Substance: CELECOXIB
     Indication: ARTHRITIS
     Dosage: 200 MG, 1X/DAY
     Route: 048
     Dates: start: 20150311, end: 201503
  8. CELEXA [Concomitant]
     Active Substance: CITALOPRAM HYDROBROMIDE
     Dosage: 40MG IN THE MORNING
  9. CLONAZEPAM. [Concomitant]
     Active Substance: CLONAZEPAM
     Dosage: 0.5MG HALF DOSE FORM IN THE MORNING
  10. TEMAZEPAM. [Concomitant]
     Active Substance: TEMAZEPAM
     Dosage: 15MG IN THE MORNING
  11. FIBERCON [Concomitant]
     Active Substance: CALCIUM POLYCARBOPHIL
     Dosage: 2 DOSE FORM IN THE MORNING

REACTIONS (1)
  - Drug ineffective [Unknown]

NARRATIVE: CASE EVENT DATE: 201503
